FAERS Safety Report 4464091-4 (Version None)
Quarter: 2004Q3

REPORT INFORMATION
  Report Type: 
  Country: None (occurrence: None)
  Receive Date: 20040929
  Receipt Date: 20040929
  Transmission Date: 20050211
  Serious: Yes (Life-Threatening)
  Sender: FDA-Public Use
  Company Number: None

PATIENT
  Age: 78 Year
  Sex: Male
  Weight: 96 kg

DRUGS (1)
  1. LOVENOX [Suspect]
     Indication: HIP FRACTURE
     Dosage: 30 MG SQ BID

REACTIONS (1)
  - HAEMORRHAGE [None]
